FAERS Safety Report 6474828-0 (Version None)
Quarter: 2009Q4

REPORT INFORMATION
  Report Type: 
  Country: None (occurrence: None)
  Receive Date: 20091204
  Receipt Date: 20090216
  Transmission Date: 20100525
  Serious: Yes (Other)
  Sender: FDA-Public Use
  Company Number: GR-ELI_LILLY_AND_COMPANY-GR200902003953

PATIENT
  Age: 48 Year
  Sex: Female

DRUGS (5)
  1. ZYPREXA [Suspect]
     Indication: PSYCHOTIC DISORDER
     Dosage: 10 MG, UNKNOWN
     Route: 065
  2. ZYPREXA [Interacting]
     Dosage: 30 MG, UNKNOWN
     Route: 065
  3. MIRTAZAPINE [Interacting]
     Indication: PSYCHOTIC DISORDER
     Dosage: 30 MG, DAILY (1/D)
     Route: 048
  4. MIRTAZAPINE [Interacting]
     Dosage: 60 MG, DAILY (1/D)
     Route: 065
  5. QUETIAPINE [Concomitant]
     Indication: PSYCHOTIC DISORDER
     Dosage: 600 MG, UNKNOWN
     Route: 065

REACTIONS (2)
  - DRUG INTERACTION [None]
  - STATUS EPILEPTICUS [None]
